FAERS Safety Report 7267989-7 (Version None)
Quarter: 2011Q1

REPORT INFORMATION
  Report Type: 
  Country: None (occurrence: None)
  Receive Date: 20110201
  Receipt Date: 20110126
  Transmission Date: 20110831
  Serious: Yes (Death, Hospitalization)
  Sender: FDA-Public Use
  Company Number: US-CELGENEUS-163-21880-11010041

PATIENT
  Sex: Female

DRUGS (10)
  1. REVLIMID [Suspect]
     Indication: AMYLOIDOSIS
     Route: 048
     Dates: start: 20100907
  2. NORVIR [Concomitant]
     Route: 065
  3. LASIX [Concomitant]
     Route: 065
     Dates: start: 20100101
  4. POTASSIUM [Concomitant]
     Route: 065
     Dates: start: 20100101
  5. BUPRENORPHINE [Concomitant]
     Route: 060
     Dates: start: 20100101
  6. CALCIUM [Concomitant]
     Route: 065
     Dates: start: 20100101
  7. RED BLOOD CELLS [Concomitant]
     Route: 065
  8. LISINOPRIL [Concomitant]
     Route: 065
  9. HIV MEDICATIONS [Concomitant]
     Route: 065
  10. VITAMIN D [Concomitant]
     Route: 065
     Dates: start: 20100101

REACTIONS (4)
  - HYPOTENSION [None]
  - RENAL TUBULAR NECROSIS [None]
  - DIARRHOEA [None]
  - AMYLOIDOSIS [None]
